FAERS Safety Report 21420672 (Version 1)
Quarter: 2022Q4

REPORT INFORMATION
  Report Type: Spontaneous
  Country: US (occurrence: US)
  Receive Date: 20221007
  Receipt Date: 20221007
  Transmission Date: 20230113
  Serious: Yes (Other)
  Sender: FDA-Public Use
  Company Number: US-BRISTOL-MYERS SQUIBB COMPANY-2022-115164

PATIENT
  Age: 66 Year
  Sex: Female
  Weight: 88.63 kg

DRUGS (6)
  1. REVLIMID [Suspect]
     Active Substance: LENALIDOMIDE
     Indication: Plasma cell myeloma
     Dosage: 3 WEEKS ON, 1WEEK OFF
     Route: 048
     Dates: start: 20220902, end: 20220912
  2. REVLIMID [Suspect]
     Active Substance: LENALIDOMIDE
     Route: 065
  3. MIDODRINE HYDROCHLORIDE [Concomitant]
     Active Substance: MIDODRINE HYDROCHLORIDE
     Indication: Product used for unknown indication
     Route: 048
  4. SENSIPAR [Concomitant]
     Active Substance: CINACALCET HYDROCHLORIDE
     Indication: Product used for unknown indication
     Route: 048
  5. TORSEMIDE [Concomitant]
     Active Substance: TORSEMIDE
     Indication: Product used for unknown indication
     Dosage: PRN
     Route: 048
  6. TRAMADOL [Concomitant]
     Active Substance: TRAMADOL
     Indication: Product used for unknown indication
     Dosage: DAILY PRN
     Route: 048

REACTIONS (7)
  - Rash [Recovered/Resolved]
  - Nausea [Recovered/Resolved]
  - Diarrhoea [Recovered/Resolved]
  - Dehydration [Recovered/Resolved]
  - Hypotension [Recovered/Resolved]
  - Dizziness [Recovering/Resolving]
  - Drug intolerance [Unknown]

NARRATIVE: CASE EVENT DATE: 20220902
